FAERS Safety Report 22293301 (Version 4)
Quarter: 2023Q4

REPORT INFORMATION
  Report Type: Spontaneous
  Country: US (occurrence: US)
  Receive Date: 20230508
  Receipt Date: 20231030
  Transmission Date: 20240109
  Serious: Yes (Other)
  Sender: FDA-Public Use
  Company Number: US-VIIV HEALTHCARE LIMITED-US2023063280

PATIENT
  Sex: Female
  Weight: 76 kg

DRUGS (4)
  1. CABENUVA [Suspect]
     Active Substance: CABOTEGRAVIR\RILPIVIRINE
     Indication: HIV infection
     Dosage: UNK 300MG RILPIVIRINE
     Route: 030
     Dates: start: 20230208
  2. CABENUVA [Suspect]
     Active Substance: CABOTEGRAVIR\RILPIVIRINE
  3. CABENUVA [Suspect]
     Active Substance: CABOTEGRAVIR\RILPIVIRINE
  4. CABENUVA [Suspect]
     Active Substance: CABOTEGRAVIR\RILPIVIRINE
     Indication: HIV infection
     Dosage: UNK 300MG
     Route: 030
     Dates: start: 20230315

REACTIONS (6)
  - Injection site abscess [Recovering/Resolving]
  - Nodule [Recovered/Resolved with Sequelae]
  - Injection site discomfort [Recovered/Resolved with Sequelae]
  - Subcutaneous abscess [Recovering/Resolving]
  - Condition aggravated [Recovered/Resolved with Sequelae]
  - Macular pigmentation [Unknown]

NARRATIVE: CASE EVENT DATE: 20230101
